FAERS Safety Report 6425397-2 (Version None)
Quarter: 2009Q4

REPORT INFORMATION
  Report Type: 
  Country: None (occurrence: None)
  Receive Date: 20091103
  Receipt Date: 20091020
  Transmission Date: 20100525
  Serious: Yes (Other)
  Sender: FDA-Public Use
  Company Number: US-JNJCH-2009023943

PATIENT
  Age: 42 Year
  Sex: Female

DRUGS (1)
  1. SUDAFED 12 HOUR [Suspect]
     Indication: SINUSITIS
     Dosage: TEXT:2 TABLETS 1X PER DAY EVERY MORNING
     Route: 048

REACTIONS (5)
  - BLISTER [None]
  - DYSGEUSIA [None]
  - NAUSEA [None]
  - PRODUCT QUALITY ISSUE [None]
  - PRODUCT TAMPERING [None]
